FAERS Safety Report 7717974-3 (Version None)
Quarter: 2011Q3

REPORT INFORMATION
  Report Type: 
  Country: None (occurrence: None)
  Receive Date: 20110830
  Receipt Date: 20110823
  Transmission Date: 20111222
  Serious: Yes (Hospitalization)
  Sender: FDA-Public Use
  Company Number: US-JNJFOC-20110812336

PATIENT
  Sex: Female
  Weight: 28.1 kg

DRUGS (3)
  1. PROTON PUMP INHIBITOR [Concomitant]
  2. MESALAMINE [Concomitant]
     Route: 048
  3. REMICADE [Suspect]
     Indication: INFLAMMATORY BOWEL DISEASE
     Route: 042
     Dates: start: 20110413

REACTIONS (3)
  - DECREASED APPETITE [None]
  - DIARRHOEA [None]
  - ABDOMINAL PAIN [None]
